FAERS Safety Report 11987658 (Version 1)
Quarter: 2016Q1

REPORT INFORMATION
  Report Type: Spontaneous
  Country: US (occurrence: US)
  Receive Date: 20160202
  Receipt Date: 20160202
  Transmission Date: 20160526
  Serious: Yes (Other)
  Sender: FDA-Public Use
  Company Number: US-PAR PHARMACEUTICAL COMPANIES-2016SCPR015138

PATIENT

DRUGS (1)
  1. MEGESTROL ACETATE. [Suspect]
     Active Substance: MEGESTROL ACETATE
     Indication: WEIGHT ABNORMAL
     Dosage: UNK UNK, UNKNOWN
     Route: 065

REACTIONS (2)
  - Adrenal insufficiency [Unknown]
  - Deep vein thrombosis [Unknown]
